FAERS Safety Report 9717047 (Version 1)
Quarter: 2013Q4

REPORT INFORMATION
  Report Type: Spontaneous
  Country: US (occurrence: US)
  Receive Date: 20131127
  Receipt Date: 20131127
  Transmission Date: 20140711
  Serious: No
  Sender: FDA-Public Use
  Company Number: US-GILEAD-2009-0020718

PATIENT
  Sex: Female
  Weight: 54.43 kg

DRUGS (16)
  1. LETAIRIS [Suspect]
     Indication: PULMONARY ARTERIAL HYPERTENSION
     Route: 048
     Dates: start: 20080503
  2. OXYGEN [Concomitant]
  3. REVATIO [Concomitant]
  4. NORVASC [Concomitant]
  5. CLINDAMYCIN [Concomitant]
  6. ALBUTEROL [Concomitant]
  7. SERVENT DISKUS [Concomitant]
  8. FLOVENT HFA [Concomitant]
  9. ATROVENT [Concomitant]
  10. CYTOMEL [Concomitant]
  11. SYNTHROID [Concomitant]
  12. PREDNISONE [Concomitant]
  13. VICODIN [Concomitant]
  14. FOSAMAX [Concomitant]
  15. PRILOSEC [Concomitant]
  16. IMODIUM AD [Concomitant]

REACTIONS (3)
  - Vitreous floaters [Unknown]
  - Nasal congestion [Unknown]
  - Respiratory tract irritation [Unknown]
